FAERS Safety Report 4385803-4 (Version None)
Quarter: 2004Q2

REPORT INFORMATION
  Report Type: 
  Country: None (occurrence: None)
  Receive Date: 20040623
  Receipt Date: 20040615
  Transmission Date: 20050107
  Serious: Yes (Death)
  Sender: FDA-Public Use
  Company Number: HQWYE460815JUN04

PATIENT
  Age: 14 Month
  Sex: Female

DRUGS (3)
  1. CHILDREN'S ADVIL [Suspect]
     Indication: PYREXIA
     Dosage: 2 DF
     Route: 048
     Dates: start: 20031206, end: 20031206
  2. CHILDREN'S ADVIL [Suspect]
     Indication: VARICELLA
     Dosage: 2 DF
     Route: 048
     Dates: start: 20031206, end: 20031206
  3. ACETAMINOPHEN [Suspect]
     Indication: VARICELLA
     Dosage: ORAL
     Route: 048
     Dates: start: 20031202, end: 20031206

REACTIONS (8)
  - BETA HAEMOLYTIC STREPTOCOCCAL INFECTION [None]
  - CARDIAC ARREST [None]
  - CARDIAC FAILURE [None]
  - HERPES ZOSTER [None]
  - HYPOTONIA [None]
  - RESPIRATORY ARREST [None]
  - RESPIRATORY FAILURE [None]
  - SHOCK [None]
